FAERS Safety Report 5892387-8 (Version None)
Quarter: 2008Q3

REPORT INFORMATION
  Report Type: 
  Country: None (occurrence: None)
  Receive Date: 20080919
  Receipt Date: 20080919
  Transmission Date: 20090109
  Serious: Yes (Disabling)
  Sender: FDA-Public Use
  Company Number: None

PATIENT
  Age: 35 Year
  Sex: Female
  Weight: 111 kg

DRUGS (1)
  1. ENDURE 320 ADVANCED CARE ECOLAB INC HEALTHCARE DIVISION [Suspect]
     Indication: INFECTION
     Dosage: TOP
     Route: 061
     Dates: start: 20080909, end: 20080909

REACTIONS (1)
  - DERMATITIS CONTACT [None]
